FAERS Safety Report 25767495 (Version 1)
Quarter: 2025Q3

REPORT INFORMATION
  Report Type: Spontaneous
  Country: US (occurrence: US)
  Receive Date: 20250905
  Receipt Date: 20250905
  Transmission Date: 20251021
  Serious: Yes (Other)
  Sender: NOVO NORDISK
  Company Number: US-NOVOPROD-1509325

PATIENT

DRUGS (1)
  1. WEGOVY [Suspect]
     Active Substance: SEMAGLUTIDE
     Indication: Product used for unknown indication

REACTIONS (6)
  - Diabetes mellitus [Unknown]
  - Glucose tolerance impaired [Unknown]
  - Neuralgia [Unknown]
  - Nervous system disorder [Unknown]
  - Anxiety [Unknown]
  - Blood glucose increased [Unknown]
